FAERS Safety Report 7572304-5 (Version None)
Quarter: 2011Q2

REPORT INFORMATION
  Report Type: 
  Country: None (occurrence: None)
  Receive Date: 20110624
  Receipt Date: 20110615
  Transmission Date: 20111010
  Serious: Yes (Other)
  Sender: FDA-Public Use
  Company Number: PHHY2011MX53040

PATIENT
  Sex: Male

DRUGS (1)
  1. RITALIN [Suspect]
     Indication: ATTENTION DEFICIT/HYPERACTIVITY DISORDER
     Dosage: 1 DF, QD
     Dates: start: 20100801

REACTIONS (4)
  - ANIMAL BITE [None]
  - OCULAR HYPERAEMIA [None]
  - FEELING ABNORMAL [None]
  - DISORIENTATION [None]
